FAERS Safety Report 8348492-X (Version None)
Quarter: 2012Q2

REPORT INFORMATION
  Report Type: 
  Country: None (occurrence: None)
  Receive Date: 20120509
  Receipt Date: 20120430
  Transmission Date: 20120825
  Serious: Yes (Hospitalization, Other)
  Sender: FDA-Public Use
  Company Number: US-MERCK-1204USA04555

PATIENT
  Age: 60 Year
  Sex: Female
  Weight: 96 kg

DRUGS (10)
  1. FOSAMAX [Suspect]
     Route: 048
     Dates: start: 20080101, end: 20080301
  2. AMLODIPINE [Concomitant]
     Indication: HYPERTENSION
     Dosage: TO PRESENT
     Route: 048
     Dates: start: 20040701
  3. FOSAMAX [Suspect]
     Route: 048
  4. LOSARTAN POTASSIUM [Concomitant]
     Dosage: TO PRESENT
     Route: 048
     Dates: start: 20040701
  5. FOSAMAX [Suspect]
     Indication: OSTEOPOROSIS
     Route: 048
  6. PRILOSEC [Concomitant]
     Dosage: TO PRESENT
     Route: 065
     Dates: start: 20040701
  7. BENICAR [Concomitant]
     Route: 065
     Dates: start: 20040701
  8. FOSAMAX [Suspect]
     Indication: LUNG TRANSPLANT
     Route: 048
     Dates: start: 20041001, end: 20071201
  9. PREDNISONE [Concomitant]
     Indication: IMMUNOSUPPRESSION
     Dosage: TO PRESENT
     Route: 065
     Dates: start: 20040701
  10. SIMVASTATIN [Concomitant]
     Indication: HYPERLIPIDAEMIA
     Dosage: TO PRESENT
     Route: 048
     Dates: start: 20040701

REACTIONS (31)
  - FEMUR FRACTURE [None]
  - DECREASED APPETITE [None]
  - PLEURAL EFFUSION [None]
  - OFF LABEL USE [None]
  - MAMMOGRAM ABNORMAL [None]
  - INSOMNIA [None]
  - BREATH SOUNDS ABNORMAL [None]
  - HEADACHE [None]
  - RENAL FAILURE ACUTE [None]
  - DIARRHOEA [None]
  - RENAL FAILURE CHRONIC [None]
  - GASTROOESOPHAGEAL REFLUX DISEASE [None]
  - ACROCHORDON [None]
  - IMPAIRED HEALING [None]
  - RESTLESS LEGS SYNDROME [None]
  - COUGH [None]
  - THYROID DISORDER [None]
  - RENAL FAILURE [None]
  - PATHOLOGICAL FRACTURE [None]
  - PULMONARY FIBROSIS [None]
  - PAIN IN JAW [None]
  - NAUSEA [None]
  - CARDIAC MURMUR [None]
  - STRESS FRACTURE [None]
  - PNEUMONIA [None]
  - DEHYDRATION [None]
  - SOMNOLENCE [None]
  - SINUSITIS [None]
  - DRUG LEVEL ABOVE THERAPEUTIC [None]
  - DEPRESSION [None]
  - COMPLICATIONS OF TRANSPLANTED LUNG [None]
